FAERS Safety Report 6120392-5 (Version None)
Quarter: 2009Q1

REPORT INFORMATION
  Report Type: 
  Country: None (occurrence: None)
  Receive Date: 20090316
  Receipt Date: 20090316
  Transmission Date: 20090719
  Serious: Yes (Other)
  Sender: FDA-Public Use
  Company Number: None

PATIENT
  Age: 65 Year
  Sex: Female
  Weight: 51.7101 kg

DRUGS (1)
  1. EPITOL [Suspect]
     Dosage: 200MG BID PO
     Route: 048
     Dates: start: 20090217

REACTIONS (1)
  - PAIN IN EXTREMITY [None]
